FAERS Safety Report 9117360 (Version 1)
Quarter: 2013Q1

REPORT INFORMATION
  Report Type: Report from Study
  Country: US (occurrence: US)
  Receive Date: 20130129
  Receipt Date: 20130129
  Transmission Date: 20140127
  Serious: No
  Sender: FDA-Public Use
  Company Number: US-ABBOTT-12P-163-0939151-00

PATIENT
  Age: 61 Year
  Sex: Female
  Weight: 40.86 kg

DRUGS (11)
  1. HUMIRA 40 MG/0.8 ML PEN [Suspect]
     Indication: CROHN^S DISEASE
     Route: 058
     Dates: start: 20120510, end: 20120510
  2. HUMIRA 40 MG/0.8 ML PEN [Suspect]
     Dates: start: 20120524, end: 20120524
  3. IMURAN [Concomitant]
     Indication: CROHN^S DISEASE
  4. LOMOTIL [Concomitant]
     Indication: DIARRHOEA
  5. CIPRO [Concomitant]
     Indication: CROHN^S DISEASE
  6. TRAMADOL [Concomitant]
     Indication: PAIN
  7. LEVSIN [Concomitant]
     Indication: GASTROINTESTINAL PAIN
     Dosage: SELDOM
  8. GAS-X [Concomitant]
     Indication: FLATULENCE
  9. ZEGERID [Concomitant]
     Indication: GASTROOESOPHAGEAL REFLUX DISEASE
     Dosage: ABOUT WEEKLY, AS REQUIRED
  10. VITAMIN D PRESCRIPTION STRENGTH [Concomitant]
     Indication: VITAMIN SUPPLEMENTATION
     Dosage: WEEKLY
  11. ALBUTEROL [Concomitant]
     Indication: ASTHMA
     Dosage: ABOUT ONCE A YEAR, AS REQUIRED

REACTIONS (2)
  - Injection site mass [Not Recovered/Not Resolved]
  - Injection site swelling [Not Recovered/Not Resolved]
